FAERS Safety Report 14023273 (Version 2)
Quarter: 2018Q4

REPORT INFORMATION
  Report Type: Spontaneous
  Country: US (occurrence: US)
  Receive Date: 20170928
  Receipt Date: 20181029
  Transmission Date: 20190204
  Serious: Yes (Other)
  Sender: FDA-Public Use
  Company Number: US-SA-2016SA204775

PATIENT
  Age: 49 Year
  Sex: Female

DRUGS (2)
  1. AUBAGIO [Suspect]
     Active Substance: TERIFLUNOMIDE
     Dosage: 7MG, QD
     Route: 048
     Dates: start: 2016, end: 20180801
  2. AUBAGIO [Suspect]
     Active Substance: TERIFLUNOMIDE
     Indication: MULTIPLE SCLEROSIS
     Dosage: 7MG,QD
     Route: 048
     Dates: start: 20150101, end: 20161020

REACTIONS (5)
  - Multiple sclerosis [Unknown]
  - Drug ineffective [Unknown]
  - Gingival bleeding [Recovered/Resolved]
  - Rash [Recovered/Resolved]
  - Arthralgia [Recovered/Resolved]

NARRATIVE: CASE EVENT DATE: 20151001
